FAERS Safety Report 4342813-0 (Version None)
Quarter: 2004Q2

REPORT INFORMATION
  Report Type: 
  Country: None (occurrence: None)
  Receive Date: 20040416
  Receipt Date: 20040407
  Transmission Date: 20050107
  Serious: Yes (Other)
  Sender: FDA-Public Use
  Company Number: 04-00171

PATIENT
  Age: 35 Year
  Sex: Male

DRUGS (1)
  1. KADIAN [Suspect]
     Indication: CLUSTER HEADACHE
     Dosage: 50 MG, ONE TABLET SEVEN TIMES DAILY, ORAL
     Route: 048

REACTIONS (2)
  - DRUG TOXICITY [None]
  - OVERDOSE [None]
